APPROVED DRUG PRODUCT: NASALIDE
Active Ingredient: FLUNISOLIDE
Strength: 0.025MG/SPRAY **Federal Register determination that product was not discontinued or withdrawn for safety or effectiveness reasons**
Dosage Form/Route: SPRAY, METERED;NASAL
Application: N018148 | Product #001
Applicant: IVAX RESEARCH INC
Approved: Approved Prior to Jan 1, 1982 | RLD: Yes | RS: No | Type: DISCN